FAERS Safety Report 6480871-8 (Version None)
Quarter: 2009Q4

REPORT INFORMATION
  Report Type: 
  Country: None (occurrence: None)
  Receive Date: 20091208
  Receipt Date: 20090507
  Transmission Date: 20100525
  Serious: No
  Sender: FDA-Public Use
  Company Number: US-AMGEN-KDL337349

PATIENT
  Sex: Male

DRUGS (2)
  1. ENBREL [Suspect]
     Indication: PSORIASIS
     Route: 058
     Dates: start: 20080320
  2. ENBREL [Suspect]
     Indication: PSORIATIC ARTHROPATHY

REACTIONS (6)
  - ABDOMINAL PAIN UPPER [None]
  - ANKYLOSING SPONDYLITIS [None]
  - INJECTION SITE PAIN [None]
  - NAUSEA [None]
  - PHARYNGITIS STREPTOCOCCAL [None]
  - VOMITING [None]
